FAERS Safety Report 4654499-6 (Version None)
Quarter: 2005Q2

REPORT INFORMATION
  Report Type: 
  Country: None (occurrence: None)
  Receive Date: 20050504
  Receipt Date: 20050504
  Transmission Date: 20051028
  Serious: Yes (Other)
  Sender: FDA-Public Use
  Company Number: None

PATIENT
  Sex: Female
  Weight: 71.7137 kg

DRUGS (14)
  1. GEMCITABINE [Suspect]
     Indication: PANCREATIC CARCINOMA
     Dosage: 1000 MG DAY 1 + 15 INTRAVENOUS
     Route: 042
     Dates: start: 20041229, end: 20050413
  2. BEVACIZUMAB 25 MG/ML GENENTECH [Suspect]
     Indication: PANCREATIC CARCINOMA
     Dosage: 10 MG/KG DAY 1 + 15 INTRAVENOUS
     Route: 042
     Dates: start: 20041229, end: 20050413
  3. CISPLATIN [Suspect]
     Indication: PANCREATIC CARCINOMA
     Dosage: 20MG INTRAVENOU
     Route: 042
     Dates: start: 20041229, end: 20050413
  4. METOPROLOL [Concomitant]
  5. COZAAR [Concomitant]
  6. NORVASC [Concomitant]
  7. PANCREASE [Concomitant]
  8. CLONAZEPAM [Concomitant]
  9. SEROQUEL [Concomitant]
  10. TRAZADONE [Concomitant]
  11. SPIRONOLACTONE [Concomitant]
  12. ADVAIR DISKUS 100/50 [Concomitant]
  13. EFFEXOR [Concomitant]
  14. NEXIUM [Concomitant]

REACTIONS (3)
  - DIZZINESS [None]
  - HYPERHIDROSIS [None]
  - NAUSEA [None]
